FAERS Safety Report 14988269 (Version 1)
Quarter: 2018Q2

REPORT INFORMATION
  Report Type: Spontaneous
  Country: CA (occurrence: CA)
  Receive Date: 20180519
  Receipt Date: 20180519
  Transmission Date: 20180711
  Serious: No
  Sender: FDA-Public Use
  Company Number: None

PATIENT
  Age: 27 Year
  Sex: Female
  Weight: 51.75 kg

DRUGS (1)
  1. ONRELTEA [Suspect]
     Active Substance: BRIMONIDINE TARTRATE
     Indication: RASH
     Dosage: ?          QUANTITY:5 GTT DROP(S);?
     Route: 061
     Dates: start: 20180413, end: 20180418

REACTIONS (8)
  - Hypersensitivity [None]
  - Skin swelling [None]
  - Application site pain [None]
  - Dry skin [None]
  - Feeling hot [None]
  - Emotional disorder [None]
  - Anger [None]
  - Flushing [None]

NARRATIVE: CASE EVENT DATE: 20180518
